FAERS Safety Report 20981661 (Version 1)
Quarter: 2022Q2

REPORT INFORMATION
  Report Type: Spontaneous
  Country: US (occurrence: None)
  Receive Date: 20220620
  Receipt Date: 20220620
  Transmission Date: 20220721
  Serious: Yes (Hospitalization, Other)
  Sender: FDA-Public Use
  Company Number: US-MLMSERVICE-20220531-3585571-1

PATIENT
  Age: 52 Year
  Sex: Male

DRUGS (2)
  1. AMIODARONE [Suspect]
     Active Substance: AMIODARONE
     Indication: Nodal arrhythmia
     Dosage: UNKNOWN
     Route: 065
  2. AMIODARONE [Suspect]
     Active Substance: AMIODARONE
     Indication: Left ventricular dysfunction

REACTIONS (5)
  - Drug ineffective [Unknown]
  - Accessory cardiac pathway [Recovered/Resolved]
  - Atrioventricular block first degree [Unknown]
  - Sinus bradycardia [Unknown]
  - Wolff-Parkinson-White syndrome [Recovered/Resolved]
